FAERS Safety Report 6855082-4 (Version None)
Quarter: 2010Q3

REPORT INFORMATION
  Report Type: 
  Country: None (occurrence: None)
  Receive Date: 20100717
  Receipt Date: 20081125
  Transmission Date: 20110219
  Serious: No
  Sender: FDA-Public Use
  Company Number: US-PFIZER INC-2007103298

PATIENT
  Sex: Female
  Weight: 67.6 kg

DRUGS (9)
  1. CHANTIX [Suspect]
     Indication: TOBACCO ABUSE
     Route: 048
     Dates: start: 20071102, end: 20071107
  2. CHANTIX [Suspect]
     Indication: CHRONIC SINUSITIS
  3. LEXAPRO [Concomitant]
  4. XANAX [Concomitant]
  5. VICODIN [Concomitant]
  6. ZANTAC [Concomitant]
  7. FLEXERIL [Concomitant]
  8. LINSEED OIL [Concomitant]
  9. MULTI-VITAMINS [Concomitant]

REACTIONS (3)
  - ANXIETY [None]
  - FEELING ABNORMAL [None]
  - PAIN [None]
